FAERS Safety Report 18123061 (Version 2)
Quarter: 2020Q4

REPORT INFORMATION
  Report Type: Report from Study
  Country: FR (occurrence: FR)
  Receive Date: 20200807
  Receipt Date: 20201022
  Transmission Date: 20210113
  Serious: Yes (Death, Hospitalization, Other)
  Sender: FDA-Public Use
  Company Number: FR-BRISTOL-MYERS SQUIBB COMPANY-BMS-2020-061159

PATIENT
  Age: 84 Year
  Sex: Male

DRUGS (1)
  1. NIVOLUMAB [Suspect]
     Active Substance: NIVOLUMAB
     Indication: RENAL CELL CARCINOMA
     Dosage: 240 MILLIGRAM, EVERY 15 DAYS
     Route: 042
     Dates: start: 20190929

REACTIONS (8)
  - Weight decreased [Unknown]
  - Asthenia [Unknown]
  - Fall [Unknown]
  - Wound [Unknown]
  - General physical health deterioration [Recovering/Resolving]
  - Decreased appetite [Unknown]
  - Off label use [Unknown]
  - Fracture [Unknown]
